FAERS Safety Report 5253070-5 (Version None)
Quarter: 2007Q1

REPORT INFORMATION
  Report Type: 
  Country: None (occurrence: None)
  Receive Date: 20070301
  Receipt Date: 20070217
  Transmission Date: 20070707
  Serious: Yes (Other)
  Sender: FDA-Public Use
  Company Number: PHEH2007US02094

PATIENT
  Age: 42 Year
  Sex: Female

DRUGS (3)
  1. ZELNORM [Suspect]
     Indication: CONSTIPATION
     Dosage: 6 MG, BID
     Dates: start: 20070131, end: 20070216
  2. ADDERALL 10 [Concomitant]
     Dates: start: 20061001, end: 20070201
  3. HORMONES [Concomitant]
     Dates: start: 20030101

REACTIONS (2)
  - FATIGUE [None]
  - RECTAL HAEMORRHAGE [None]
